FAERS Safety Report 9820528 (Version 3)
Quarter: 2014Q1

REPORT INFORMATION
  Report Type: Spontaneous
  Country: JP (occurrence: JP)
  Receive Date: 20140116
  Receipt Date: 20140203
  Transmission Date: 20141002
  Serious: Yes (Hospitalization)
  Sender: FDA-Public Use
  Company Number: JP-PFIZER INC-2014008326

PATIENT
  Sex: 0

DRUGS (2)
  1. DIFLUCAN [Suspect]
     Dosage: UNK
     Route: 048
  2. OLMETEC [Concomitant]
     Dosage: UNK
     Route: 048

REACTIONS (2)
  - Herpes virus infection [Recovered/Resolved]
  - Blood pressure increased [Recovered/Resolved]
